FAERS Safety Report 20894984 (Version 1)
Quarter: 2022Q2

REPORT INFORMATION
  Report Type: Spontaneous
  Country: FR (occurrence: FR)
  Receive Date: 20220531
  Receipt Date: 20220531
  Transmission Date: 20220721
  Serious: Yes (Hospitalization)
  Sender: FDA-Public Use
  Company Number: None

PATIENT
  Age: 59 Year
  Sex: Female

DRUGS (6)
  1. MORPHINE SULFATE [Interacting]
     Active Substance: MORPHINE SULFATE
     Indication: Back pain
     Dosage: UNK
     Route: 065
  2. PRISTINAMYCIN [Interacting]
     Active Substance: PRISTINAMYCIN
     Indication: Pneumonia
     Dosage: 500 MG, Q4D (500 MG TWO IN THE MORNING, TWO AT NOON, TWO IN THE EVENING)
     Route: 065
  3. MORPHINE [Interacting]
     Active Substance: MORPHINE
     Indication: Ankylosing spondylitis
     Dosage: UNK
     Route: 065
  4. MORPHINE [Interacting]
     Active Substance: MORPHINE
     Indication: Procedural pain
  5. NAPROXEN SODIUM [Concomitant]
     Active Substance: NAPROXEN SODIUM
     Dosage: UNK
     Route: 065
  6. NEURONTIN [Concomitant]
     Active Substance: GABAPENTIN
     Dosage: UNK
     Route: 065

REACTIONS (3)
  - Drug interaction [Unknown]
  - Inadequate analgesia [Unknown]
  - Drug withdrawal syndrome [Unknown]
